FAERS Safety Report 20779022 (Version 1)
Quarter: 2022Q2

REPORT INFORMATION
  Report Type: Spontaneous
  Country: US (occurrence: None)
  Receive Date: 20220503
  Receipt Date: 20220503
  Transmission Date: 20220720
  Serious: Yes (Other)
  Sender: FDA-Public Use
  Company Number: None

PATIENT
  Sex: Male
  Weight: 70.65 kg

DRUGS (7)
  1. XTANDI [Suspect]
     Active Substance: ENZALUTAMIDE
     Indication: Prostate cancer metastatic
     Dosage: FREQUENCY : DAILY;?
     Route: 048
     Dates: start: 20211021
  2. ATORVASTATIN [Concomitant]
     Active Substance: ATORVASTATIN
  3. DOXAZOSIN MESYLATE [Concomitant]
     Active Substance: DOXAZOSIN MESYLATE
  4. GABAPENTIN [Concomitant]
     Active Substance: GABAPENTIN
  5. GLIMEPIRIDE [Concomitant]
     Active Substance: GLIMEPIRIDE
  6. LOSARTAN [Concomitant]
     Active Substance: LOSARTAN
  7. METFORMIN [Concomitant]
     Active Substance: METFORMIN HYDROCHLORIDE

REACTIONS (4)
  - Dizziness [None]
  - Fall [None]
  - Headache [None]
  - Tinnitus [None]
